FAERS Safety Report 9418138 (Version 1)
Quarter: 2013Q3

REPORT INFORMATION
  Report Type: Spontaneous
  Country: FR (occurrence: FR)
  Receive Date: 20130724
  Receipt Date: 20130724
  Transmission Date: 20140515
  Serious: Yes (Hospitalization)
  Sender: FDA-Public Use
  Company Number: FR-ASTRAZENECA-2013SE54706

PATIENT
  Age: 57 Year
  Sex: Male

DRUGS (6)
  1. XEROQUEL [Suspect]
     Indication: BIPOLAR DISORDER
     Route: 048
     Dates: start: 20130606, end: 20130615
  2. ABILIFY [Concomitant]
     Route: 048
  3. DEROXAT [Concomitant]
     Route: 048
  4. LAMICTAL [Concomitant]
     Route: 048
  5. LEXOMIL [Concomitant]
     Route: 048
  6. ALPRAZOLAM [Concomitant]
     Route: 048

REACTIONS (2)
  - Myocarditis [Unknown]
  - Troponin increased [Recovering/Resolving]
